FAERS Safety Report 18217955 (Version 1)
Quarter: 2020Q3

REPORT INFORMATION
  Report Type: Spontaneous
  Country: US (occurrence: US)
  Receive Date: 20200828
  Receipt Date: 20200828
  Transmission Date: 20201103
  Serious: No
  Sender: FDA-Public Use
  Company Number: None

PATIENT
  Age: 70 Year
  Sex: Female
  Weight: 84.82 kg

DRUGS (2)
  1. TYMLOS [Suspect]
     Active Substance: ABALOPARATIDE
     Indication: RHEUMATOID ARTHRITIS
     Dosage: ?          OTHER STRENGTH:3120MCG/ML;?
     Route: 058
     Dates: start: 202003
  2. TYMLOS [Suspect]
     Active Substance: ABALOPARATIDE
     Indication: SENILE OSTEOPOROSIS
     Dosage: ?          OTHER STRENGTH:3120MCG/ML;?
     Route: 058
     Dates: start: 202003

REACTIONS (1)
  - Surgery [None]
